FAERS Safety Report 10494454 (Version 1)
Quarter: 2014Q4

REPORT INFORMATION
  Report Type: Spontaneous
  Country: PL (occurrence: None)
  Receive Date: 20141001
  Receipt Date: 20141001
  Transmission Date: 20150528
  Serious: Yes (Hospitalization, Disabling, Other)
  Sender: FDA-Public Use
  Company Number: PL-ZYDUS-005039

PATIENT
  Age: 65 Year
  Sex: Female

DRUGS (1)
  1. METFORMIN [Suspect]
     Active Substance: METFORMIN HYDROCHLORIDE

REACTIONS (9)
  - Metabolic acidosis [None]
  - Hypoglycaemia [None]
  - Haemodialysis [None]
  - Hyperkalaemia [None]
  - Hypotension [None]
  - Toxicity to various agents [None]
  - Renal failure [None]
  - Respiratory failure [None]
  - Circulatory collapse [None]
